FAERS Safety Report 11433886 (Version 1)
Quarter: 2015Q3

REPORT INFORMATION
  Report Type: Spontaneous
  Country: US (occurrence: US)
  Receive Date: 20150831
  Receipt Date: 20150831
  Transmission Date: 20151125
  Serious: Yes (Other)
  Sender: FDA-Public Use
  Company Number: US-BAYER-2015-405808

PATIENT
  Age: 51 Year
  Sex: Male

DRUGS (31)
  1. NIFEDIPINE. [Suspect]
     Active Substance: NIFEDIPINE
  2. FENTANYL. [Concomitant]
     Active Substance: FENTANYL
     Indication: PAIN
     Dosage: 75 MCG
     Route: 042
  3. PROPOFOL. [Concomitant]
     Active Substance: PROPOFOL
     Dosage: 170 MG, UNK
     Route: 042
  4. METOCLOPRAMIDE. [Concomitant]
     Active Substance: METOCLOPRAMIDE
     Dosage: 10 MG, UNK
     Route: 042
  5. HYDROMORPHONE [Concomitant]
     Active Substance: HYDROMORPHONE
     Indication: PAIN
     Dosage: 1.4 MG, UNK
     Route: 042
  6. CLONIDINE. [Suspect]
     Active Substance: CLONIDINE
  7. ACETAMINOPHEN. [Concomitant]
     Active Substance: ACETAMINOPHEN
     Indication: PAIN
     Dosage: 1 G, UNK
     Route: 048
  8. BUPIVACAINE [Concomitant]
     Active Substance: BUPIVACAINE
  9. HYDRALAZINE [Suspect]
     Active Substance: HYDRALAZINE HYDROCHLORIDE
  10. ATENOLOL. [Suspect]
     Active Substance: ATENOLOL
  11. REMIFENTANIL [Concomitant]
     Active Substance: REMIFENTANIL
     Dosage: 0.05 TO 0.08 MCG/KG/MIN
     Route: 042
  12. OXYCODONE HYDROCHLORIDE EXTENDED RELEASE [Concomitant]
     Indication: PAIN
     Dosage: 30 MG, UNK
     Route: 048
  13. ROPIVACAINE [Concomitant]
     Active Substance: ROPIVACAINE
  14. FUROSEMIDE. [Suspect]
     Active Substance: FUROSEMIDE
  15. FENTANYL. [Concomitant]
     Active Substance: FENTANYL
     Indication: PAIN
     Dosage: 775 MCG
     Route: 042
  16. ONDANSETRON [Concomitant]
     Active Substance: ONDANSETRON
     Indication: VOMITING
     Dosage: 16 MG, UNK
     Route: 042
  17. LABETALOL [Concomitant]
     Active Substance: LABETALOL\LABETALOL HYDROCHLORIDE
  18. OXYCODONE [Concomitant]
     Active Substance: OXYCODONE
     Indication: PAIN
     Dosage: 25 MG, UNK
     Route: 048
  19. TRAMADOL. [Concomitant]
     Active Substance: TRAMADOL
     Dosage: TOTAL 200 MG
     Route: 048
  20. MIDAZOLAM [Concomitant]
     Active Substance: MIDAZOLAM\MIDAZOLAM HYDROCHLORIDE
     Dosage: 1 G, UNK
     Route: 042
  21. FENTANYL. [Concomitant]
     Active Substance: FENTANYL
     Indication: PAIN
     Dosage: 250 MCG
     Route: 042
  22. HYDROMORPHONE [Concomitant]
     Active Substance: HYDROMORPHONE
     Indication: PAIN
     Dosage: 1 MG, UNK
     Route: 042
  23. TRAMADOL. [Concomitant]
     Active Substance: TRAMADOL
     Dosage: 20 MG, UNK
     Route: 048
  24. PROCHLORPERAZINE. [Concomitant]
     Active Substance: PROCHLORPERAZINE
     Indication: VOMITING
     Dosage: 10 MG, UNK
     Route: 042
  25. OXYCODONE HYDROCHLORIDE EXTENDED RELEASE [Concomitant]
     Indication: PAIN
     Dosage: 20 UNK, UNK
     Route: 048
  26. LISINOPRIL. [Suspect]
     Active Substance: LISINOPRIL
  27. ONDANSETRON [Concomitant]
     Active Substance: ONDANSETRON
     Indication: VOMITING
     Dosage: 8 MG, UNK
     Route: 042
  28. ONDANSETRON [Concomitant]
     Active Substance: ONDANSETRON
     Indication: VOMITING
     Dosage: 8 MG, QID
  29. CEFAZOLIN [Concomitant]
     Active Substance: CEFAZOLIN
     Dosage: 2 G, QID
     Route: 042
  30. ACETAMINOPHEN. [Concomitant]
     Active Substance: ACETAMINOPHEN
     Indication: PAIN
     Dosage: 2 G, UNK
     Route: 042
  31. OXYCODONE [Concomitant]
     Active Substance: OXYCODONE
     Indication: PAIN
     Dosage: 5 UNK, UNK
     Route: 048

REACTIONS (2)
  - Drug intolerance [None]
  - Hypertensive crisis [None]
